FAERS Safety Report 4400082-7 (Version None)
Quarter: 2004Q3

REPORT INFORMATION
  Report Type: 
  Country: None (occurrence: None)
  Receive Date: 20040716
  Receipt Date: 20040701
  Transmission Date: 20050211
  Serious: Yes (Disabling)
  Sender: FDA-Public Use
  Company Number: JP-MERCK-0407USA00418

PATIENT
  Age: 70 Year
  Sex: Male

DRUGS (5)
  1. [THERAPY UNSPECIFIED] [Concomitant]
     Indication: DEHYDRATION
     Route: 041
     Dates: start: 20040528, end: 20040528
  2. [THERAPY UNSPECIFIED] [Concomitant]
     Route: 041
     Dates: start: 20040526, end: 20040528
  3. PRIMAXIN [Suspect]
     Indication: PNEUMONIA
     Route: 042
     Dates: start: 20040526, end: 20040528
  4. CLINDAMYCIN PHOSPHATE [Suspect]
     Indication: PNEUMONIA
     Route: 051
     Dates: start: 20040526, end: 20040528
  5. LASIX [Concomitant]
     Route: 042
     Dates: start: 20040527

REACTIONS (1)
  - HEPATIC FAILURE [None]
